FAERS Safety Report 8216826-2 (Version None)
Quarter: 2012Q1

REPORT INFORMATION
  Report Type: 
  Country: None (occurrence: None)
  Receive Date: 20120316
  Receipt Date: 20120307
  Transmission Date: 20120608
  Serious: Yes (Disabling)
  Sender: FDA-Public Use
  Company Number: JP-ASTRAZENECA-2009SE02871

PATIENT
  Age: 6126 Day
  Sex: Female
  Weight: 54 kg

DRUGS (12)
  1. SEROQUEL [Suspect]
     Route: 048
     Dates: start: 20080925, end: 20080925
  2. SEROQUEL [Suspect]
     Route: 048
     Dates: start: 20081015, end: 20081016
  3. SEROQUEL [Suspect]
     Indication: BIPOLAR II DISORDER
     Route: 048
     Dates: start: 20080923, end: 20080923
  4. SEROQUEL [Suspect]
     Dosage: 75 MG DAILY DIVIDED  INTO TWO DOSES
     Route: 048
     Dates: start: 20080924, end: 20080924
  5. SEROQUEL [Suspect]
     Route: 048
     Dates: start: 20081015, end: 20081016
  6. LITHIUM CARBONATE [Concomitant]
     Indication: ADJUSTMENT DISORDER
     Route: 048
     Dates: start: 20081016
  7. SEROQUEL [Suspect]
     Route: 048
     Dates: start: 20080925, end: 20080925
  8. LITHIUM CARBONATE [Concomitant]
     Route: 048
  9. MAGMITT [Concomitant]
     Indication: CONSTIPATION
     Route: 048
     Dates: start: 20080829
  10. SEROQUEL [Suspect]
     Indication: ADJUSTMENT DISORDER
     Route: 048
     Dates: start: 20080923, end: 20080923
  11. SEROQUEL [Suspect]
     Dosage: 75 MG DAILY DIVIDED  INTO TWO DOSES
     Route: 048
     Dates: start: 20080924, end: 20080924
  12. RISUMIC [Concomitant]
     Indication: HYPOTENSION
     Route: 048
     Dates: end: 20081104

REACTIONS (1)
  - VENTRICULAR EXTRASYSTOLES [None]
